FAERS Safety Report 23396538 (Version 2)
Quarter: 2024Q2

REPORT INFORMATION
  Report Type: Spontaneous
  Country: US (occurrence: US)
  Receive Date: 20240112
  Receipt Date: 20240523
  Transmission Date: 20240715
  Serious: No
  Sender: FDA-Public Use
  Company Number: US-BEH-2024167112

PATIENT
  Age: 53 Year
  Sex: Female

DRUGS (57)
  1. HIZENTRA [Suspect]
     Active Substance: HUMAN IMMUNOGLOBULIN G
     Indication: Immunodeficiency common variable
     Dosage: 14 GRAM, QW
     Route: 058
     Dates: start: 20171024
  2. ACYCLOVIR [Concomitant]
     Active Substance: ACYCLOVIR
  3. ALBUTEROL SULFATE [Concomitant]
     Active Substance: ALBUTEROL SULFATE
  4. ALBUTEROL [Concomitant]
     Active Substance: ALBUTEROL
  5. ALBUTEROL [Concomitant]
     Active Substance: ALBUTEROL
  6. ALENDRONATE [Concomitant]
     Active Substance: ALENDRONATE SODIUM
  7. ATORVASTATIN [Concomitant]
     Active Substance: ATORVASTATIN
  8. AZITHROMYCIN [Concomitant]
     Active Substance: AZITHROMYCIN
  9. BENZONATATE [Concomitant]
     Active Substance: BENZONATATE
  10. BUDESONIDE\FORMOTEROL [Concomitant]
     Active Substance: BUDESONIDE\FORMOTEROL
  11. CIMETIDINE [Concomitant]
     Active Substance: CIMETIDINE
  12. CYCLOBENZAPRINE [Concomitant]
     Active Substance: CYCLOBENZAPRINE
  13. DICLOFENAC [Concomitant]
     Active Substance: DICLOFENAC
  14. DOCUSATE SODIUM [Concomitant]
     Active Substance: DOCUSATE SODIUM
  15. DOXAZOSIN [Concomitant]
     Active Substance: DOXAZOSIN MESYLATE
  16. DULOXETINE [Concomitant]
     Active Substance: DULOXETINE
  17. EPINEPHRINE [Concomitant]
     Active Substance: EPINEPHRINE
  18. FLUTICASONE [Concomitant]
     Active Substance: FLUTICASONE
  19. FUROSEMIDE [Concomitant]
     Active Substance: FUROSEMIDE
  20. GABAPENTIN [Concomitant]
     Active Substance: GABAPENTIN
  21. HYDROCODONE BITARTRATE AND ACETAMINOPHEN [Concomitant]
     Active Substance: ACETAMINOPHEN\HYDROCODONE BITARTRATE
  22. HYDROCORT [HYDROCORTISONE] [Concomitant]
  23. HYDROXYZINE HYDROCHLORIDE [Concomitant]
     Active Substance: HYDROXYZINE HYDROCHLORIDE
  24. IBUPROFEN [Concomitant]
     Active Substance: IBUPROFEN
  25. KEPPRA [Concomitant]
     Active Substance: LEVETIRACETAM
  26. KLOR-CON M10 [Concomitant]
     Active Substance: POTASSIUM CHLORIDE
  27. LASIX [Concomitant]
     Active Substance: FUROSEMIDE
  28. LATUDA [Concomitant]
     Active Substance: LURASIDONE HYDROCHLORIDE
  29. LEVETIRACETAM [Concomitant]
     Active Substance: LEVETIRACETAM
  30. LIDOCAINE AND PRILOCAINE [Concomitant]
     Active Substance: LIDOCAINE\PRILOCAINE
  31. LORATADINE [Concomitant]
     Active Substance: LORATADINE
  32. MEDROXYPROGESTERONE ACETATE [Concomitant]
     Active Substance: MEDROXYPROGESTERONE ACETATE
  33. METHOCARBAMOL [Concomitant]
     Active Substance: METHOCARBAMOL
  34. MUCINEX [Concomitant]
     Active Substance: GUAIFENESIN
  35. MULTIVITAMIN ACTIVE WOMAN [Concomitant]
  36. NAPROXEN [Concomitant]
     Active Substance: NAPROXEN
  37. NICOTINE POLACRILEX [Concomitant]
     Active Substance: NICOTINE
  38. OMEPRAZOLE [Concomitant]
     Active Substance: DONEPEZIL HYDROCHLORIDE\OMEPRAZOLE\OMEPRAZOLE MAGNESIUM
  39. OYSTER SHELL [Concomitant]
     Active Substance: OSTREA EDULIS SHELL
  40. PAXLOVID [Concomitant]
     Active Substance: NIRMATRELVIR\RITONAVIR
  41. POLYETHYLENE GLYCOLS [Concomitant]
     Active Substance: POLYETHYLENE GLYCOLS
  42. POTASSIUM CHLORIDE [Concomitant]
     Active Substance: POTASSIUM CHLORIDE
  43. PRAZOSIN HYDROCHLORIDE [Concomitant]
     Active Substance: PRAZOSIN HYDROCHLORIDE
  44. PREDNISONE [Concomitant]
     Active Substance: PREDNISONE
  45. PROMETHAZINE [Concomitant]
     Active Substance: PROMETHAZINE HYDROCHLORIDE
  46. PROMETHAZINE [Concomitant]
     Active Substance: PROMETHAZINE HYDROCHLORIDE
  47. QVAR REDIHALER [Concomitant]
     Active Substance: BECLOMETHASONE DIPROPIONATE
  48. RANITIDINE [Concomitant]
     Active Substance: RANITIDINE
  49. SOLU-CORTEF [Concomitant]
     Active Substance: HYDROCORTISONE SODIUM SUCCINATE
  50. SUMATRIPTAN [Concomitant]
     Active Substance: SUMATRIPTAN
  51. SUPREP BOWEL PREP [Concomitant]
     Active Substance: MAGNESIUM SULFATE\POTASSIUM SULFATE\SODIUM SULFATE
  52. SYMBICORT [Concomitant]
     Active Substance: BUDESONIDE\FORMOTEROL FUMARATE DIHYDRATE
  53. TRAZODONE [Concomitant]
     Active Substance: TRAZODONE HYDROCHLORIDE
  54. VALACYCLOVIR [Concomitant]
     Active Substance: VALACYCLOVIR HYDROCHLORIDE
  55. CHOLECALCIFEROL [Concomitant]
     Active Substance: CHOLECALCIFEROL
  56. VITAMIN D3 [Concomitant]
     Active Substance: CHOLECALCIFEROL
  57. ZOFRAN [Concomitant]
     Active Substance: ONDANSETRON HYDROCHLORIDE

REACTIONS (3)
  - Nausea [Unknown]
  - Vomiting [Unknown]
  - General physical health deterioration [Unknown]

NARRATIVE: CASE EVENT DATE: 20240401
